FAERS Safety Report 18675275 (Version 1)
Quarter: 2020Q4

REPORT INFORMATION
  Report Type: Spontaneous
  Country: SI (occurrence: SI)
  Receive Date: 20201229
  Receipt Date: 20201229
  Transmission Date: 20210114
  Serious: Yes (Other)
  Sender: FDA-Public Use
  Company Number: SI-ACCORD-212331

PATIENT
  Age: 58 Year
  Sex: Male

DRUGS (1)
  1. AZACITIDINE. [Suspect]
     Active Substance: AZACITIDINE
     Indication: CHRONIC MYELOMONOCYTIC LEUKAEMIA
     Dosage: TOTAL DURATION OF TREATMENT 7 YEARS AND 3 MONTHS

REACTIONS (3)
  - Myocardial ischaemia [Unknown]
  - Neutropenia [Unknown]
  - Respiratory tract infection [Unknown]
